FAERS Safety Report 6055568-9 (Version None)
Quarter: 2009Q1

REPORT INFORMATION
  Report Type: 
  Country: None (occurrence: None)
  Receive Date: 20090128
  Receipt Date: 20090123
  Transmission Date: 20090719
  Serious: Yes (Other)
  Sender: FDA-Public Use
  Company Number: B0556221A

PATIENT
  Age: 23 Year
  Sex: Female

DRUGS (10)
  1. ZOFRAN [Suspect]
     Indication: THERMAL BURN
     Dosage: 8MG PER DAY
     Route: 042
     Dates: start: 20080720, end: 20080730
  2. ENANTYUM [Suspect]
     Indication: THERMAL BURN
     Dosage: 50MGML PER DAY
     Route: 042
     Dates: start: 20080720, end: 20080730
  3. PANTOPRAZOL [Concomitant]
     Route: 042
     Dates: start: 20080720
  4. PERFALGAN [Concomitant]
     Dosage: 10MGML PER DAY
     Route: 042
     Dates: start: 20080720
  5. DOLANTINA [Concomitant]
     Route: 042
     Dates: start: 20080720
  6. NOLOTIL [Concomitant]
     Route: 042
     Dates: start: 20080720
  7. CEFAZOLINA [Concomitant]
     Route: 042
     Dates: start: 20080722, end: 20080728
  8. TOBRAMICINA [Concomitant]
     Route: 042
     Dates: start: 20080722, end: 20080728
  9. LEXATIN [Concomitant]
     Dosage: 1.5MG PER DAY
     Route: 048
     Dates: start: 20080722, end: 20080728
  10. HIBOR [Concomitant]
     Route: 058
     Dates: start: 20080720

REACTIONS (1)
  - HEPATIC LESION [None]
